FAERS Safety Report 17981353 (Version 4)
Quarter: 2020Q4

REPORT INFORMATION
  Report Type: Report from Study
  Country: None (occurrence: US)
  Receive Date: 20200705
  Receipt Date: 20201124
  Transmission Date: 20210113
  Serious: Yes (Other)
  Sender: FDA-Public Use
  Company Number: US-ABBVIE-20K-163-3470378-00

PATIENT
  Age: 54 Year
  Sex: Female

DRUGS (1)
  1. RINVOQ [Suspect]
     Active Substance: UPADACITINIB
     Indication: RHEUMATOID ARTHRITIS
     Route: 048

REACTIONS (5)
  - Knee arthroplasty [Unknown]
  - Peripheral swelling [Unknown]
  - Knee arthroplasty [Unknown]
  - Musculoskeletal discomfort [Unknown]
  - Pain [Unknown]

NARRATIVE: CASE EVENT DATE: 202006
